FAERS Safety Report 7124824-5 (Version None)
Quarter: 2010Q4

REPORT INFORMATION
  Report Type: 
  Country: None (occurrence: None)
  Receive Date: 20101129
  Receipt Date: 20101115
  Transmission Date: 20110411
  Serious: Yes (Death, Hospitalization, Other)
  Sender: FDA-Public Use
  Company Number: US-RANBAXY-2010RR-39707

PATIENT
  Age: 60 Year
  Sex: Female

DRUGS (3)
  1. AMLODIPINE BESYLATE [Suspect]
     Dosage: 2.5 MG, UNK
     Route: 048
  2. METOPROLOL [Suspect]
  3. NAPROXEN [Suspect]
     Route: 048

REACTIONS (2)
  - HYPOTENSION [None]
  - OVERDOSE [None]
